FAERS Safety Report 5191731-7 (Version None)
Quarter: 2006Q4

REPORT INFORMATION
  Report Type: 
  Country: None (occurrence: None)
  Receive Date: 20061219
  Receipt Date: 20061206
  Transmission Date: 20070319
  Serious: Yes (Hospitalization)
  Sender: FDA-Public Use
  Company Number: 033-1343-M0200002

PATIENT
  Age: 2 Month
  Sex: Female

DRUGS (4)
  1. VIRACEPT [Suspect]
     Indication: HIV TEST POSITIVE
  2. ZIDOVUDINE [Suspect]
     Indication: HIV TEST POSITIVE
     Dosage: ORAL
     Route: 048
     Dates: start: 19990604, end: 19990728
  3. DIDANOSINE [Suspect]
     Indication: HIV TEST POSITIVE
  4. NEVIRAPINE [Suspect]
     Indication: HIV TEST POSITIVE

REACTIONS (5)
  - DRUG EXPOSURE DURING PREGNANCY [None]
  - GASTROOESOPHAGEAL REFLUX DISEASE [None]
  - HYPERLACTACIDAEMIA [None]
  - MEDICATION ERROR [None]
  - NONSPECIFIC REACTION [None]
